FAERS Safety Report 25413698 (Version 1)
Quarter: 2025Q2

REPORT INFORMATION
  Report Type: Report from Study
  Country: CA (occurrence: CA)
  Receive Date: 20250609
  Receipt Date: 20250609
  Transmission Date: 20250716
  Serious: Yes (Hospitalization, Other)
  Sender: TAKEDA
  Company Number: CA-TAKEDA-2025TUS051406

PATIENT
  Sex: Male

DRUGS (10)
  1. VEDOLIZUMAB [Suspect]
     Active Substance: VEDOLIZUMAB
     Indication: Colitis ulcerative
  2. VEDOLIZUMAB [Suspect]
     Active Substance: VEDOLIZUMAB
  3. MESALAMINE [Concomitant]
     Active Substance: MESALAMINE
  4. AMLODIPINE [Concomitant]
     Active Substance: AMLODIPINE BESYLATE
  5. PLAVIX [Concomitant]
     Active Substance: CLOPIDOGREL BISULFATE
  6. LIPITOR [Concomitant]
     Active Substance: ATORVASTATIN CALCIUM
  7. HUMULIN N [Concomitant]
     Active Substance: INSULIN HUMAN
  8. HUMULIN R [Concomitant]
     Active Substance: INSULIN HUMAN
  9. PERINDOPRIL [Concomitant]
     Active Substance: PERINDOPRIL
  10. MESALAMINE [Concomitant]
     Active Substance: MESALAMINE

REACTIONS (2)
  - Cervical spinal stenosis [Unknown]
  - Pneumonia [Unknown]
